FAERS Safety Report 23105620 (Version 1)
Quarter: 2023Q4

REPORT INFORMATION
  Report Type: Spontaneous
  Country: CN (occurrence: CN)
  Receive Date: 20231025
  Receipt Date: 20231025
  Transmission Date: 20240109
  Serious: Yes (Other)
  Sender: FDA-Public Use
  Company Number: CN-PFIZER INC-PV202300174447

PATIENT
  Age: 56 Year
  Sex: Female

DRUGS (1)
  1. LINEZOLID [Suspect]
     Active Substance: LINEZOLID
     Indication: Endocarditis
     Dosage: 0.6 G, 3X/DAY
     Route: 041
     Dates: start: 20230925, end: 20231003

REACTIONS (4)
  - Rash [Recovering/Resolving]
  - Erythema [Recovering/Resolving]
  - Drug eruption [Recovered/Resolved]
  - Therapeutic product effect incomplete [Unknown]

NARRATIVE: CASE EVENT DATE: 20230925
